FAERS Safety Report 9737345 (Version 1)
Quarter: 2013Q4

REPORT INFORMATION
  Report Type: Spontaneous
  Country: US (occurrence: US)
  Receive Date: 20131206
  Receipt Date: 20131206
  Transmission Date: 20140711
  Serious: No
  Sender: FDA-Public Use
  Company Number: US-BIOGENIDEC-2013BI098420

PATIENT
  Sex: Male

DRUGS (5)
  1. TECFIDERA [Suspect]
     Indication: MULTIPLE SCLEROSIS
     Route: 048
     Dates: start: 201308
  2. TECFIDERA [Suspect]
     Indication: MULTIPLE SCLEROSIS
     Route: 048
  3. AMPYRA [Concomitant]
  4. LYRICA [Concomitant]
  5. GABAPENTIN [Concomitant]

REACTIONS (2)
  - Balance disorder [Not Recovered/Not Resolved]
  - Abdominal discomfort [Recovered/Resolved]
